FAERS Safety Report 8215437-2 (Version None)
Quarter: 2012Q1

REPORT INFORMATION
  Report Type: 
  Country: None (occurrence: None)
  Receive Date: 20120316
  Receipt Date: 20111021
  Transmission Date: 20120608
  Serious: Yes (Other)
  Sender: FDA-Public Use
  Company Number: US-ROCHE-1006499

PATIENT
  Sex: Female
  Weight: 80.176 kg

DRUGS (7)
  1. FOSAMAX [Concomitant]
  2. SYNTHROID [Concomitant]
  3. GLIPIZIDE [Concomitant]
  4. CALCIUM [Concomitant]
  5. ZELBORAF [Suspect]
     Indication: METASTATIC MALIGNANT MELANOMA
     Route: 048
     Dates: start: 20110928
  6. LISINOPRIL [Concomitant]
  7. ASPIRIN [Concomitant]

REACTIONS (15)
  - WEIGHT DECREASED [None]
  - CONSTIPATION [None]
  - MELANOCYTIC NAEVUS [None]
  - DYSGEUSIA [None]
  - DIARRHOEA [None]
  - MASS [None]
  - SKIN PAPILLOMA [None]
  - FATIGUE [None]
  - JOINT SWELLING [None]
  - MALIGNANT MELANOMA [None]
  - NEOPLASM [None]
  - ALOPECIA [None]
  - OEDEMA PERIPHERAL [None]
  - RASH [None]
  - DECREASED APPETITE [None]
